FAERS Safety Report 8190421-6 (Version None)
Quarter: 2012Q1

REPORT INFORMATION
  Report Type: 
  Country: None (occurrence: None)
  Receive Date: 20120305
  Receipt Date: 20120222
  Transmission Date: 20120608
  Serious: Yes (Hospitalization, Congenital Anomaly, Other)
  Sender: FDA-Public Use
  Company Number: AUR-APL-2012-01121

PATIENT
  Age: 28 Day
  Sex: Female
  Weight: 2.85 kg

DRUGS (6)
  1. LAMOTRIGINE [Suspect]
     Indication: DEPRESSION
     Dosage: (200 MG, 1 D), TRANSPLACENTAL
     Route: 064
  2. LORAZEPAM [Suspect]
     Indication: BORDERLINE PERSONALITY DISORDER
     Dosage: (1 D), TRANSPLACENTAL
     Route: 064
     Dates: end: 20100601
  3. TRIMIPRAMINE MALEATE [Suspect]
     Indication: DEPRESSION
     Dosage: (400 MG, 1 D), TRANSPLACENTAL
     Route: 064
     Dates: end: 20100901
  4. FOLSAURE (FOLIC ACID) [Concomitant]
  5. RISPERDAL [Suspect]
     Indication: POST-TRAUMATIC STRESS DISORDER
     Dosage: (6 MG, 1 D), TRANSPLACENTAL
     Route: 064
     Dates: end: 20100701
  6. VENLAFAXINE HCL [Suspect]
     Indication: ANXIETY DISORDER
     Dosage: (150 MG, 1 D), TRANSPLACENTAL
     Route: 064
     Dates: end: 20100701

REACTIONS (5)
  - ATRIAL SEPTAL DEFECT [None]
  - MATERNAL DRUGS AFFECTING FOETUS [None]
  - CAESAREAN SECTION [None]
  - COARCTATION OF THE AORTA [None]
  - PATENT DUCTUS ARTERIOSUS [None]
